FAERS Safety Report 6380381-2 (Version None)
Quarter: 2009Q3

REPORT INFORMATION
  Report Type: 
  Country: None (occurrence: None)
  Receive Date: 20090929
  Receipt Date: 20090923
  Transmission Date: 20100115
  Serious: Yes (Death, Hospitalization)
  Sender: FDA-Public Use
  Company Number: CA-NOVOPROD-292061

PATIENT
  Age: 83 Year
  Sex: Male
  Weight: 71 kg

DRUGS (8)
  1. INSULIN DETEMIR 2.4 MOL/L [Suspect]
     Indication: TYPE 2 DIABETES MELLITUS
     Dosage: 14 IU, QD
     Dates: start: 20090511, end: 20090817
  2. JANUVIA [Concomitant]
     Dosage: 100 MG, QD
     Route: 048
     Dates: start: 20080131, end: 20090817
  3. METFORMIN HCL [Concomitant]
     Dosage: 3000 MG, QD
     Route: 048
     Dates: start: 20061023, end: 20090817
  4. MICARDIS HCT [Concomitant]
     Dosage: 80 MG, QD
     Route: 048
     Dates: start: 20030919, end: 20090817
  5. PROSCAR [Concomitant]
     Dosage: 5 MG, QD
     Route: 048
     Dates: start: 20090218, end: 20090817
  6. FUROSEMIDE [Concomitant]
     Dosage: 40 MG, QD
     Route: 048
     Dates: start: 20071221, end: 20090817
  7. EZETROL [Concomitant]
     Dosage: 10 MG, QD
     Route: 048
     Dates: start: 20071214, end: 20090817
  8. DIAMICRON [Concomitant]
     Dosage: 120 MG, QD
     Route: 048
     Dates: start: 20080926, end: 20090817

REACTIONS (6)
  - ASTHENIA [None]
  - CARDIAC ARREST [None]
  - CHOLECYSTITIS [None]
  - MYOCARDIAL INFARCTION [None]
  - UROSEPSIS [None]
  - WEIGHT DECREASED [None]
